FAERS Safety Report 8838777 (Version 1)
Quarter: 2012Q4

REPORT INFORMATION
  Report Type: 
  Country: US (occurrence: US)
  Receive Date: 20121012
  Receipt Date: 20121012
  Transmission Date: 20130627
  Serious: No
  Sender: FDA-Public Use
  Company Number: US-009507513-1209USA006104

PATIENT
  Age: 48 Year
  Sex: Female

DRUGS (2)
  1. SAPHRIS [Suspect]
     Route: 048
  2. GEODON [Suspect]

REACTIONS (1)
  - Sedation [Unknown]
